FAERS Safety Report 25865084 (Version 2)
Quarter: 2025Q4

REPORT INFORMATION
  Report Type: Spontaneous
  Country: US (occurrence: US)
  Receive Date: 20250930
  Receipt Date: 20251009
  Transmission Date: 20260118
  Serious: No
  Sender: VERTEX
  Company Number: US-VERTEX PHARMACEUTICALS-2025-015979

PATIENT
  Sex: Male

DRUGS (2)
  1. TRIKAFTA [Suspect]
     Active Substance: ELEXACAFTOR\IVACAFTOR\TEZACAFTOR
     Indication: Cystic fibrosis
     Dosage: TWO ORANGE TABLETS EVERY MORNING AND ONE BLUE TABLET EVERY EVENING
     Route: 048
     Dates: end: 20250819
  2. TRIKAFTA [Suspect]
     Active Substance: ELEXACAFTOR\IVACAFTOR\TEZACAFTOR
     Dosage: TWO ORANGE TABLETS EVERY MORNING AND ONE BLUE TABLET EVERY EVENING
     Route: 048
     Dates: start: 20250919

REACTIONS (1)
  - Hepatomegaly [Not Recovered/Not Resolved]
